FAERS Safety Report 23124227 (Version 1)
Quarter: 2023Q4

REPORT INFORMATION
  Report Type: Spontaneous
  Country: IE (occurrence: None)
  Receive Date: 20231030
  Receipt Date: 20231030
  Transmission Date: 20240110
  Serious: Yes (Other)
  Sender: FDA-Public Use
  Company Number: IE-Noden Pharma DAC-NOD202310-000011

PATIENT
  Age: 67 Year
  Sex: Female

DRUGS (3)
  1. RASILEZ [Suspect]
     Active Substance: ALISKIREN
     Indication: Hypertension
     Route: 048
     Dates: start: 20110720, end: 20110723
  2. TENORET 50 [Concomitant]
     Indication: Product used for unknown indication
     Dosage: ATENOLOL HYDROCHLORIDE 50 MG /CHLORTALIDONE 12.5 MG
  3. TENORMIN 50 MG FILM-COATED TABLETS [Concomitant]
     Indication: Product used for unknown indication

REACTIONS (13)
  - Immune system disorder [Not Recovered/Not Resolved]
  - Walking aid user [Not Recovered/Not Resolved]
  - Thyroid disorder [Not Recovered/Not Resolved]
  - Fall [Not Recovered/Not Resolved]
  - Optic nerve disorder [Not Recovered/Not Resolved]
  - Spinal disorder [Not Recovered/Not Resolved]
  - Joint swelling [Not Recovered/Not Resolved]
  - Eye movement disorder [Not Recovered/Not Resolved]
  - Cataract [Not Recovered/Not Resolved]
  - Blood pressure increased [Not Recovered/Not Resolved]
  - Oedema peripheral [Recovered/Resolved]
  - Swelling of eyelid [Recovered/Resolved]
  - Drug ineffective [Unknown]

NARRATIVE: CASE EVENT DATE: 20110101
